FAERS Safety Report 24575597 (Version 1)
Quarter: 2024Q4

REPORT INFORMATION
  Report Type: Spontaneous
  Country: TH (occurrence: TH)
  Receive Date: 20241104
  Receipt Date: 20241104
  Transmission Date: 20250115
  Serious: Yes (Death, Other)
  Sender: NOVARTIS
  Company Number: TH-002147023-NVSC2024TH211183

PATIENT
  Age: 4 Year
  Sex: Female

DRUGS (3)
  1. CYCLOSPORINE [Suspect]
     Active Substance: CYCLOSPORINE
     Indication: Autoimmune lymphoproliferative syndrome
     Dosage: 1.5 MG/KG, QD WITH LEVEL OF 99 NG/ML
     Route: 065
  2. PREDNISOLONE [Suspect]
     Active Substance: PREDNISOLONE
     Indication: Autoimmune lymphoproliferative syndrome
     Dosage: 0.7 MG/KG, QD
     Route: 065
  3. CEFTRIAXONE [Concomitant]
     Active Substance: CEFTRIAXONE
     Indication: Gastroenteritis
     Dosage: UNK
     Route: 065

REACTIONS (7)
  - Mycobacterium avium complex infection [Fatal]
  - Pyrexia [Fatal]
  - Abdominal pain [Fatal]
  - Vomiting [Fatal]
  - Haematemesis [Fatal]
  - Product use issue [Unknown]
  - Product use in unapproved indication [Unknown]
